FAERS Safety Report 6059194-7 (Version None)
Quarter: 2009Q1

REPORT INFORMATION
  Report Type: 
  Country: None (occurrence: None)
  Receive Date: 20090127
  Receipt Date: 20090127
  Transmission Date: 20090719
  Serious: No
  Sender: FDA-Public Use
  Company Number: None

PATIENT
  Age: 49 Year
  Sex: Female
  Weight: 88.4514 kg

DRUGS (2)
  1. HUMIRA [Suspect]
     Indication: RHEUMATOID ARTHRITIS
     Dosage: 40MG SC EOW SQ
     Route: 058
     Dates: start: 20030404, end: 20070603
  2. REMICADE [Suspect]
     Indication: RHEUMATOID ARTHRITIS
     Dosage: 300MG Q8 WEEKS IV DRIP
     Route: 041
     Dates: start: 20070710, end: 20081205

REACTIONS (1)
  - SKIN PAPILLOMA [None]
